FAERS Safety Report 6166959-X (Version None)
Quarter: 2009Q2

REPORT INFORMATION
  Report Type: 
  Country: None (occurrence: None)
  Receive Date: 20090424
  Receipt Date: 20090414
  Transmission Date: 20091009
  Serious: Yes (Hospitalization)
  Sender: FDA-Public Use
  Company Number: US-PFIZER INC-2006138064

PATIENT
  Sex: Male
  Weight: 71.2 kg

DRUGS (11)
  1. SUNITINIB MALATE [Suspect]
     Indication: PROSTATE CANCER
     Dosage: 50 MG, 1X/DAY
     Route: 048
     Dates: start: 20060316, end: 20061018
  2. COMPAZINE [Concomitant]
     Dates: start: 20060824
  3. LOMOTIL [Concomitant]
     Dates: start: 20061019
  4. ZOFRAN [Concomitant]
     Dates: start: 20061019
  5. ARANESP [Concomitant]
     Dates: start: 20060921
  6. LUPRON [Concomitant]
     Dates: start: 20050609
  7. PERCOCET [Concomitant]
     Dates: start: 20060727
  8. IBUPROFEN [Concomitant]
     Dates: start: 20060727
  9. ATENOLOL [Concomitant]
  10. HYDROCHLOROTHIAZIDE [Concomitant]
  11. MORPHINE SULFATE [Concomitant]
     Dates: start: 20060915

REACTIONS (3)
  - ABDOMINAL ABSCESS [None]
  - PERITONITIS [None]
  - SMALL INTESTINAL OBSTRUCTION [None]
